FAERS Safety Report 9131169 (Version 1)
Quarter: 2013Q1

REPORT INFORMATION
  Report Type: Report from Study
  Country: GR (occurrence: GR)
  Receive Date: 20130301
  Receipt Date: 20130301
  Transmission Date: 20140127
  Serious: Yes (Other)
  Sender: FDA-Public Use
  Company Number: GR-COVIDIEN/TYCO HEALTHCARE/MALLINCKRODT-T201301034

PATIENT
  Sex: 0

DRUGS (1)
  1. OPTIRAY 350 [Suspect]
     Indication: PERCUTANEOUS CORONARY INTERVENTION
     Dosage: 272 ML, SINGLE, MEAN VOLUME
     Route: 013

REACTIONS (1)
  - Nephropathy toxic [Unknown]
